FAERS Safety Report 5422614-2 (Version None)
Quarter: 2007Q3

REPORT INFORMATION
  Report Type: 
  Country: None (occurrence: None)
  Receive Date: 20070822
  Receipt Date: 20070817
  Transmission Date: 20080115
  Serious: Yes (Death)
  Sender: FDA-Public Use
  Company Number: US-BAXTER-2007BH004235

PATIENT
  Age: 54 Year
  Sex: Female

DRUGS (16)
  1. DOBUTAMINE HYDROCHLORIDE [Suspect]
     Indication: SEPTIC SHOCK
     Route: 042
     Dates: start: 20070311
  2. LEVOPHED [Suspect]
     Indication: DRUG USE FOR UNKNOWN INDICATION
     Dosage: DOSE UNIT:UNKNOWN
     Route: 042
     Dates: start: 20070311
  3. CARDIZEM [Concomitant]
     Indication: SUPRAVENTRICULAR TACHYCARDIA
     Route: 042
     Dates: start: 20070311, end: 20070311
  4. ADENOSINE [Concomitant]
     Indication: SUPRAVENTRICULAR TACHYCARDIA
     Route: 040
     Dates: start: 20070311, end: 20070311
  5. ADENOSINE [Concomitant]
     Route: 040
     Dates: start: 20070311, end: 20070311
  6. VERSED [Concomitant]
     Indication: SEDATION
     Dosage: DOSE UNIT:UNKNOWN
     Route: 042
     Dates: start: 20070311, end: 20070311
  7. TYLENOL [Concomitant]
     Indication: PYREXIA
     Dosage: DOSE UNIT:UNKNOWN
     Route: 067
     Dates: start: 20070311
  8. DECADRON                                /CAN/ [Concomitant]
     Indication: DRUG USE FOR UNKNOWN INDICATION
     Dosage: DOSE UNIT:UNKNOWN
     Route: 042
  9. ROCEPHIN [Concomitant]
     Indication: SEPSIS
     Dosage: DOSE UNIT:UNKNOWN
     Route: 042
     Dates: start: 20070311
  10. VANCOMYCIN [Concomitant]
     Indication: SEPSIS
     Dosage: DOSE UNIT:UNKNOWN
     Route: 042
     Dates: start: 20070311
  11. PROPOFOL [Concomitant]
     Indication: SEDATION
     Dosage: DOSE UNIT:UNKNOWN
     Route: 042
     Dates: start: 20070311
  12. LISINOPRIL [Concomitant]
     Indication: DRUG USE FOR UNKNOWN INDICATION
     Dosage: DOSE UNIT:UNKNOWN
     Route: 065
  13. ZYRTEC [Concomitant]
     Indication: DRUG USE FOR UNKNOWN INDICATION
     Dosage: DOSE UNIT:UNKNOWN
     Route: 065
  14. LOVASTATIN [Concomitant]
     Indication: DRUG USE FOR UNKNOWN INDICATION
     Dosage: DOSE UNIT:UNKNOWN
     Route: 065
  15. OXYCODONE HCL [Concomitant]
     Indication: DRUG USE FOR UNKNOWN INDICATION
     Dosage: DOSE UNIT:UNKNOWN
     Route: 065
  16. PROTONIX [Concomitant]
     Indication: GASTRIC HAEMORRHAGE
     Dosage: DOSE UNIT:UNKNOWN
     Route: 042
     Dates: start: 20070311

REACTIONS (4)
  - CARDIO-RESPIRATORY ARREST [None]
  - DEVICE ELECTRICAL FINDING [None]
  - HEPATIC FUNCTION ABNORMAL [None]
  - RENAL FAILURE [None]
